FAERS Safety Report 10695714 (Version 1)
Quarter: 2015Q1

REPORT INFORMATION
  Report Type: Spontaneous
  Country: US (occurrence: None)
  Receive Date: 20150106
  Receipt Date: 20150106
  Transmission Date: 20150721
  Serious: Yes (Other)
  Sender: FDA-Public Use
  Company Number: None

PATIENT
  Age: 67 Year
  Sex: Female
  Weight: 117.94 kg

DRUGS (3)
  1. CIPROFLOXACIN HCL [Suspect]
     Active Substance: CIPROFLOXACIN HYDROCHLORIDE
     Indication: URINARY TRACT INFECTION
     Dosage: ONE TABLET TWICE DAILY TAKEN BY MOUTH
     Route: 048
     Dates: start: 20141227
  2. HYDROXYZINE PAMOATE. [Suspect]
     Active Substance: HYDROXYZINE PAMOATE
     Indication: RASH
     Dosage: ONE CAPLETS FOUR TIMES DAILY TAKEN BY MOUTH
     Route: 048
     Dates: start: 20150104, end: 20150104
  3. HYDROXYZINE PAMOATE. [Suspect]
     Active Substance: HYDROXYZINE PAMOATE
     Indication: URTICARIA
     Dosage: ONE CAPLETS FOUR TIMES DAILY TAKEN BY MOUTH
     Route: 048
     Dates: start: 20150104, end: 20150104

REACTIONS (6)
  - Product substitution issue [None]
  - Reaction to drug excipients [None]
  - Rash [None]
  - Urticaria [None]
  - Product formulation issue [None]
  - Product quality issue [None]

NARRATIVE: CASE EVENT DATE: 20150103
